FAERS Safety Report 5419677-7 (Version None)
Quarter: 2007Q3

REPORT INFORMATION
  Report Type: 
  Country: None (occurrence: None)
  Receive Date: 20070820
  Receipt Date: 20070807
  Transmission Date: 20080115
  Serious: Yes (Hospitalization)
  Sender: FDA-Public Use
  Company Number: HU-ELI_LILLY_AND_COMPANY-HU200708001668

PATIENT
  Age: 49 Year
  Sex: Male
  Weight: 55 kg

DRUGS (9)
  1. PEMETREXED [Suspect]
     Indication: NEOPLASM MALIGNANT
     Dosage: 500 MG/M2, OTHER
     Route: 042
     Dates: start: 20070619
  2. DEXTROSE [Concomitant]
     Indication: PARENTERAL NUTRITION
     Dosage: 1000 ML,
     Route: 042
     Dates: start: 20070730
  3. INFUSAMIN S5 [Concomitant]
     Indication: PARENTERAL NUTRITION
     Dosage: 500 ML,
     Route: 042
     Dates: start: 20070730
  4. INTRALIPID                         /00272201/ [Concomitant]
     Indication: PARENTERAL NUTRITION
     Dosage: 500 ML,
     Route: 042
     Dates: start: 20070802
  5. POTASSIUM CHLORIDE [Concomitant]
     Indication: PARENTERAL NUTRITION
     Dosage: 500 ML,
     Route: 042
     Dates: start: 20070730
  6. FOLIC ACID [Concomitant]
     Indication: PROPHYLAXIS
     Dosage: 1000 UG, DAILY (1/D)
     Route: 065
     Dates: start: 20070611
  7. VITAMIN B-12 [Concomitant]
     Indication: PROPHYLAXIS
     Dosage: 1000 MG, UNKNOWN
     Route: 065
     Dates: start: 20070611, end: 20070611
  8. MEDROL [Concomitant]
     Indication: PROPHYLAXIS
     Dosage: 40 MG, UNKNOWN
     Route: 065
     Dates: start: 20070730, end: 20070801
  9. CISPLATIN [Suspect]
     Indication: NEOPLASM MALIGNANT
     Dosage: 75 MG/M2, OTHER, D1 EVERY 21 DAYS
     Route: 065
     Dates: start: 20070619

REACTIONS (2)
  - HAEMOGLOBIN DECREASED [None]
  - TRISMUS [None]
